FAERS Safety Report 25464484 (Version 1)
Quarter: 2025Q2

REPORT INFORMATION
  Report Type: Spontaneous
  Country: IT (occurrence: IT)
  Receive Date: 20250621
  Receipt Date: 20250621
  Transmission Date: 20250716
  Serious: Yes (Other)
  Sender: AMGEN
  Company Number: IT-AMGEN-ITASP2025115636

PATIENT
  Age: 47 Year
  Sex: Female

DRUGS (3)
  1. ADALIMUMAB [Suspect]
     Active Substance: ADALIMUMAB
     Indication: Psoriasis
     Route: 065
  2. BRODALUMAB [Concomitant]
     Active Substance: BRODALUMAB
     Indication: Rash pustular
     Dosage: 210 MILLIGRAM, Q2WK
     Route: 058
  3. BRODALUMAB [Concomitant]
     Active Substance: BRODALUMAB
     Indication: Psoriasis

REACTIONS (1)
  - Generalised pustular psoriasis [Recovered/Resolved]
